FAERS Safety Report 8617833-8 (Version None)
Quarter: 2012Q3

REPORT INFORMATION
  Report Type: 
  Country: None (occurrence: None)
  Receive Date: 20120824
  Receipt Date: 20120221
  Transmission Date: 20120928
  Serious: No
  Sender: FDA-Public Use
  Company Number: US-ASTRAZENECA-2012SE11833

PATIENT
  Age: 69 Year
  Sex: Female
  Weight: 52.2 kg

DRUGS (6)
  1. SYMBICORT [Suspect]
     Dosage: 2 PUFFS WHEN NEEDED
     Route: 055
  2. SYMBICORT [Suspect]
     Indication: EMPHYSEMA
     Dosage: 2 PUFFS QAM
     Route: 055
  3. SYMBICORT [Suspect]
     Dosage: 2 PUFFS WHEN NEEDED
     Route: 055
  4. BLOOD PRESSURE MEDICATION [Concomitant]
     Indication: BLOOD PRESSURE ABNORMAL
  5. SYMBICORT [Suspect]
     Indication: CHRONIC OBSTRUCTIVE PULMONARY DISEASE
     Dosage: 2 PUFFS QAM
     Route: 055
  6. SPIRIVA [Concomitant]
     Dosage: AT NIGHT

REACTIONS (4)
  - OFF LABEL USE [None]
  - ADVERSE REACTION [None]
  - DYSPNOEA [None]
  - DRUG INEFFECTIVE [None]
